FAERS Safety Report 4830016-2 (Version None)
Quarter: 2005Q4

REPORT INFORMATION
  Report Type: 
  Country: None (occurrence: None)
  Receive Date: 20051114
  Receipt Date: 20050930
  Transmission Date: 20060501
  Serious: Yes (Death)
  Sender: FDA-Public Use
  Company Number: 2005AL004066

PATIENT
  Age: 28 Year

DRUGS (3)
  1. PROPOXYPHENE NAPSYLATE W/ ACETAMINOPHEN [Suspect]
  2. METHADONE [Suspect]
     Dosage: PO
     Route: 048
  3. UNKNOWN DRUG [Suspect]
     Dosage: PO
     Route: 048

REACTIONS (4)
  - CARDIAC ARREST [None]
  - COMPLETED SUICIDE [None]
  - MULTIPLE DRUG OVERDOSE INTENTIONAL [None]
  - RESPIRATORY ARREST [None]
